FAERS Safety Report 13385406 (Version 2)
Quarter: 2017Q3

REPORT INFORMATION
  Report Type: Report from Study
  Country: EC (occurrence: EC)
  Receive Date: 20170330
  Receipt Date: 20170709
  Transmission Date: 20171127
  Serious: Yes (Other)
  Sender: FDA-Public Use
  Company Number: EC-ROCHE-1905474

PATIENT
  Age: 58 Year
  Sex: Female

DRUGS (4)
  1. AVASTIN [Suspect]
     Active Substance: BEVACIZUMAB
     Indication: CERVIX CARCINOMA
     Route: 065
     Dates: start: 20170120
  2. LACTULOSE. [Concomitant]
     Active Substance: LACTULOSE
     Dosage: 2 TEASPOONS
     Route: 065
  3. BETAMETHASONE. [Concomitant]
     Active Substance: BETAMETHASONE
     Route: 065
  4. METRAZOL [Concomitant]
     Active Substance: PENTETRAZOL
     Dosage: 1 IN THE MORNING
     Route: 065

REACTIONS (7)
  - Platelet count decreased [Unknown]
  - Anal ulcer [Recovered/Resolved]
  - Pain [Unknown]
  - Decreased immune responsiveness [Unknown]
  - Anaemia [Unknown]
  - Back pain [Not Recovered/Not Resolved]
  - Arthralgia [Not Recovered/Not Resolved]

NARRATIVE: CASE EVENT DATE: 20170123
